FAERS Safety Report 7985949-5 (Version None)
Quarter: 2011Q4

REPORT INFORMATION
  Report Type: 
  Country: None (occurrence: None)
  Receive Date: 20111216
  Receipt Date: 20111215
  Transmission Date: 20120403
  Serious: Yes (Death)
  Sender: FDA-Public Use
  Company Number: US-BAYER-2011-120982

PATIENT
  Age: 59 Year
  Sex: Male

DRUGS (2)
  1. BETASERON [Suspect]
     Dosage: UNK
     Dates: start: 20040826, end: 20111014
  2. BETASERON [Suspect]
     Indication: MULTIPLE SCLEROSIS
     Dosage: UNK
     Dates: start: 19980402, end: 20040512

REACTIONS (1)
  - DEATH [None]
